FAERS Safety Report 10898968 (Version 1)
Quarter: 2015Q1

REPORT INFORMATION
  Report Type: Spontaneous
  Country: CN (occurrence: CN)
  Receive Date: 20150309
  Receipt Date: 20150309
  Transmission Date: 20150721
  Serious: Yes (Other)
  Sender: FDA-Public Use
  Company Number: ALCN2015CN001553

PATIENT
  Age: 53 Year
  Sex: Female

DRUGS (1)
  1. FLUORESCITE [Suspect]
     Active Substance: D+C YELLOW NO. 8
     Indication: ANGIOGRAM RETINA
     Dosage: 1 UNK, UNK
     Route: 065
     Dates: start: 20120510, end: 20120510

REACTIONS (4)
  - Respiration abnormal [Unknown]
  - Nausea [Unknown]
  - Chest discomfort [Unknown]
  - Confusional state [Unknown]

NARRATIVE: CASE EVENT DATE: 20120510
